FAERS Safety Report 4692638-1 (Version None)
Quarter: 2005Q2

REPORT INFORMATION
  Report Type: 
  Country: None (occurrence: None)
  Receive Date: 20050617
  Receipt Date: 20050606
  Transmission Date: 20051028
  Serious: Yes (Death, Hospitalization)
  Sender: FDA-Public Use
  Company Number: US-MERCK-0506USA01077

PATIENT
  Age: 60 Year
  Sex: Male
  Weight: 127 kg

DRUGS (7)
  1. VIOXX [Suspect]
     Indication: ARTHRITIS
     Route: 048
     Dates: start: 20000411, end: 20000501
  2. VIOXX [Suspect]
     Route: 048
     Dates: start: 20000501
  3. VIOXX [Suspect]
     Indication: CHEST WALL PAIN
     Route: 048
     Dates: start: 20000411, end: 20000501
  4. VIOXX [Suspect]
     Route: 048
     Dates: start: 20000501
  5. XENICAL [Concomitant]
     Indication: OBESITY
     Route: 048
     Dates: start: 20000411
  6. PRILOSEC [Concomitant]
     Route: 048
  7. ZOCOR [Concomitant]
     Route: 048
     Dates: start: 20000101

REACTIONS (27)
  - ALOPECIA [None]
  - ANXIETY DISORDER [None]
  - ARTHRITIS BACTERIAL [None]
  - ARTHRITIS INFECTIVE [None]
  - ATRIAL FIBRILLATION [None]
  - BACTERIAL SEPSIS [None]
  - CARDIAC FAILURE CONGESTIVE [None]
  - CEREBROVASCULAR ACCIDENT [None]
  - CHOLELITHIASIS [None]
  - COAGULOPATHY [None]
  - DEPRESSION [None]
  - DERMATITIS [None]
  - DILATATION ATRIAL [None]
  - EMOTIONAL DISTRESS [None]
  - FALL [None]
  - HYPERGLYCAEMIA [None]
  - JOINT DISLOCATION [None]
  - MENISCUS LESION [None]
  - MYOCARDIAL INFARCTION [None]
  - PLANTAR FASCIITIS [None]
  - PNEUMONIA [None]
  - QUADRIPARESIS [None]
  - RENAL FAILURE [None]
  - RESPIRATORY FAILURE [None]
  - SLEEP APNOEA SYNDROME [None]
  - STAPHYLOCOCCAL INFECTION [None]
  - VERTIGO [None]
